FAERS Safety Report 4704882-5 (Version None)
Quarter: 2005Q3

REPORT INFORMATION
  Report Type: 
  Country: None (occurrence: None)
  Receive Date: 20050701
  Receipt Date: 20050621
  Transmission Date: 20060218
  Serious: Yes (Hospitalization)
  Sender: FDA-Public Use
  Company Number: 200515850GDDC

PATIENT
  Age: 62 Year
  Sex: Male

DRUGS (5)
  1. KETEK [Suspect]
     Indication: LOWER RESPIRATORY TRACT INFECTION
     Route: 048
     Dates: start: 20050423, end: 20050429
  2. ISTIN [Concomitant]
     Indication: HYPERTENSION
     Route: 048
  3. CARDURA [Concomitant]
     Indication: HYPERTENSION
     Route: 048
  4. ATENOLOL [Concomitant]
     Indication: HYPERTENSION
     Route: 048
  5. VALIUM [Concomitant]
     Indication: HYPERTENSION
     Dosage: DOSE: UNK

REACTIONS (4)
  - CONVULSION [None]
  - HYPERSENSITIVITY [None]
  - SWELLING FACE [None]
  - SWOLLEN TONGUE [None]
